FAERS Safety Report 13048925 (Version 4)
Quarter: 2017Q2

REPORT INFORMATION
  Report Type: Report from Study
  Country: GR (occurrence: GR)
  Receive Date: 20161221
  Receipt Date: 20170419
  Transmission Date: 20170830
  Serious: Yes (Other)
  Sender: FDA-Public Use
  Company Number: GR-ROCHE-1711307

PATIENT

DRUGS (2)
  1. RITUXIMAB [Suspect]
     Active Substance: RITUXIMAB
     Indication: WALDENSTROM^S MACROGLOBULINAEMIA
     Route: 065
  2. IBRUTINIB [Suspect]
     Active Substance: IBRUTINIB
     Indication: WALDENSTROM^S MACROGLOBULINAEMIA
     Route: 048

REACTIONS (28)
  - Upper respiratory tract infection [Unknown]
  - Respiratory tract infection [Unknown]
  - Paronychia [Unknown]
  - Faecalith [Unknown]
  - Constipation [Unknown]
  - Syncope [Unknown]
  - Diffuse large B-cell lymphoma [Unknown]
  - Hyponatraemia [Unknown]
  - Infection [Unknown]
  - Anaemia [Unknown]
  - Pneumonia [Unknown]
  - Prostatic abscess [Unknown]
  - Gouty arthritis [Unknown]
  - Femur fracture [Unknown]
  - Cholecystitis acute [Unknown]
  - Thrombocytopenia [Unknown]
  - Cellulitis [Unknown]
  - Aspergillus infection [Unknown]
  - Ileus [Unknown]
  - Orchitis [Unknown]
  - Hypertension [Unknown]
  - Diarrhoea [Unknown]
  - Arthralgia [Unknown]
  - Fatigue [Unknown]
  - Transient ischaemic attack [Unknown]
  - Gastrointestinal amyloidosis [Unknown]
  - Neutropenia [Unknown]
  - Renal cell carcinoma [Unknown]
